FAERS Safety Report 17394378 (Version 1)
Quarter: 2020Q1

REPORT INFORMATION
  Report Type: Spontaneous
  Country: NL (occurrence: NL)
  Receive Date: 20200210
  Receipt Date: 20200210
  Transmission Date: 20200409
  Serious: Yes (Hospitalization)
  Sender: FDA-Public Use
  Company Number: NL-SUN PHARMACEUTICAL INDUSTRIES LTD-2020RR-235971

PATIENT
  Sex: Male
  Weight: 70 kg

DRUGS (2)
  1. DOXIPINEDOXEPINE CAPSULE  50MG [Concomitant]
     Indication: PRODUCT USED FOR UNKNOWN INDICATION
     Dosage: 50MG
     Route: 065
  2. PREGABALIN. [Suspect]
     Active Substance: PREGABALIN
     Indication: NEURALGIA
     Dosage: CAPSULE, 150 MG (MILLIGRAM), 2 KEER PER DAG, 1
     Route: 065
     Dates: start: 201912

REACTIONS (2)
  - Peripheral swelling [Not Recovered/Not Resolved]
  - Swelling of eyelid [Not Recovered/Not Resolved]
